FAERS Safety Report 19139107 (Version 1)
Quarter: 2021Q2

REPORT INFORMATION
  Report Type: Spontaneous
  Country: NL (occurrence: NL)
  Receive Date: 20210415
  Receipt Date: 20210415
  Transmission Date: 20210717
  Serious: Yes (Other)
  Sender: FDA-Public Use
  Company Number: NL-TEVA-2021-NL-1900368

PATIENT
  Age: 43 Year
  Sex: Female
  Weight: 53 kg

DRUGS (2)
  1. BISOPROLOL TABLET 2,5MG / BRAND NAME NOT SPECIFIED [Suspect]
     Active Substance: BISOPROLOL
     Indication: PALPITATIONS
     Dosage: 2 DOSAGE FORMS DAILY;
     Dates: start: 2019, end: 20210214
  2. BISOPROLOL TABLET   2,5MG / BRAND NAME NOT SPECIFIED [Suspect]
     Active Substance: BISOPROLOL
     Indication: HYPERTENSION

REACTIONS (2)
  - Porokeratosis [Recovered/Resolved]
  - Psoriasis [Recovered/Resolved]

NARRATIVE: CASE EVENT DATE: 20190601
